FAERS Safety Report 8565621 (Version 2)
Quarter: 2012Q4

REPORT INFORMATION
  Report Type: 
  Country: JP (occurrence: JP)
  Receive Date: 20120516
  Receipt Date: 20121008
  Transmission Date: 20130627
  Serious: Yes (Hospitalization)
  Sender: FDA-Public Use
  Company Number: JP-GLAXOSMITHKLINE-B0792411A

PATIENT
  Age: 80 Year
  Sex: Female
  Weight: 44 kg

DRUGS (4)
  1. VALTREX [Suspect]
     Indication: HERPES ZOSTER
     Route: 048
     Dates: start: 20111004, end: 20111008
  2. DICLOFENAC SODIUM [Suspect]
     Indication: PAIN IN EXTREMITY
     Dosage: 50MG Per day
     Route: 067
     Dates: end: 20111008
  3. LOXOPROFEN [Suspect]
     Indication: PAIN IN EXTREMITY
     Dosage: 60MG Twice per day
     Route: 048
     Dates: end: 20111008
  4. LYRICA [Suspect]
     Indication: PAIN IN EXTREMITY
     Route: 048
     Dates: start: 201108, end: 20111008

REACTIONS (13)
  - Renal failure acute [Recovered/Resolved]
  - Blood potassium increased [Unknown]
  - Blood urea increased [Unknown]
  - Blood creatinine increased [Unknown]
  - Pyelocaliectasis [Recovered/Resolved]
  - Ureteric dilatation [Recovered/Resolved]
  - Dizziness [Unknown]
  - Dyslalia [Unknown]
  - Acidosis [Recovered/Resolved]
  - Urine output decreased [Unknown]
  - Renal impairment [Recovered/Resolved]
  - Hyperkalaemia [Unknown]
  - Postrenal failure [Recovered/Resolved]
